FAERS Safety Report 8597400-5 (Version None)
Quarter: 2012Q3

REPORT INFORMATION
  Report Type: 
  Country: None (occurrence: None)
  Receive Date: 20120801
  Receipt Date: 20120719
  Transmission Date: 20120928
  Serious: Yes (Death, Hospitalization)
  Sender: FDA-Public Use
  Company Number: TOR 2012-0019

PATIENT
  Age: 84 Year
  Sex: Female

DRUGS (6)
  1. TRICHLORMETHIAZIDE [Concomitant]
  2. PLETAL [Concomitant]
  3. PRAVASTATIN SODIUM [Concomitant]
  4. FARESTON [Suspect]
     Indication: BREAST CANCER STAGE II
     Dosage: 120 MG ORAL
     Route: 048
     Dates: start: 20110915, end: 20120511
  5. ALFAROL [Concomitant]
  6. NORVASC [Concomitant]

REACTIONS (4)
  - INTERSTITIAL LUNG DISEASE [None]
  - BRONCHIECTASIS [None]
  - CONDITION AGGRAVATED [None]
  - RESPIRATORY TRACT INFECTION [None]
